FAERS Safety Report 6795266-7 (Version None)
Quarter: 2010Q2

REPORT INFORMATION
  Report Type: 
  Country: None (occurrence: None)
  Receive Date: 20100625
  Receipt Date: 20100617
  Transmission Date: 20101027
  Serious: Yes (Other)
  Sender: FDA-Public Use
  Company Number: CHPA2010US10193

PATIENT
  Sex: Male

DRUGS (2)
  1. KERI UNKNOWN (NCH) [Suspect]
     Dosage: UNK, UNK
     Route: 048
     Dates: start: 20100617
  2. KERI UNKNOWN (NCH) [Suspect]
     Dosage: UNK, UNK
     Route: 061
     Dates: start: 20100617

REACTIONS (5)
  - APPLICATION SITE PAIN [None]
  - BLINDNESS [None]
  - HAEMATEMESIS [None]
  - INCORRECT ROUTE OF DRUG ADMINISTRATION [None]
  - SEBORRHOEA [None]
